FAERS Safety Report 9493781 (Version 4)
Quarter: 2013Q4

REPORT INFORMATION
  Report Type: Spontaneous
  Country: JP (occurrence: JP)
  Receive Date: 20130902
  Receipt Date: 20131003
  Transmission Date: 20140711
  Serious: Yes (Death, Hospitalization)
  Sender: FDA-Public Use
  Company Number: JP-JNJFOC-20130710217

PATIENT
  Age: 78 Year
  Sex: Female

DRUGS (5)
  1. GOLIMUMAB [Suspect]
     Indication: RHEUMATOID ARTHRITIS
     Route: 058
     Dates: start: 20130621, end: 20130621
  2. METHOTREXATE [Concomitant]
     Indication: RHEUMATOID ARTHRITIS
     Route: 048
     Dates: start: 20120702, end: 20130719
  3. BLOPRESS [Concomitant]
     Route: 048
  4. FLOMOX [Concomitant]
     Route: 048
  5. CALCIUM [Concomitant]
     Route: 065

REACTIONS (3)
  - Stevens-Johnson syndrome [Not Recovered/Not Resolved]
  - Aplastic anaemia [Fatal]
  - Infection [Not Recovered/Not Resolved]
